FAERS Safety Report 12602056 (Version 1)
Quarter: 2016Q3

REPORT INFORMATION
  Report Type: Spontaneous
  Country: US (occurrence: None)
  Receive Date: 20160727
  Receipt Date: 20160727
  Transmission Date: 20161109
  Serious: Yes (Hospitalization, Disabling)
  Sender: FDA-Public Use
  Company Number: None

PATIENT
  Age: 63 Year
  Sex: Female

DRUGS (7)
  1. MONTELUKAST [Concomitant]
     Active Substance: MONTELUKAST SODIUM
  2. ALBUTEROL. [Concomitant]
     Active Substance: ALBUTEROL
  3. FISH OIL [Concomitant]
     Active Substance: FISH OIL
  4. METFORMIN [Suspect]
     Active Substance: METFORMIN HYDROCHLORIDE
     Indication: HYPERGLYCAEMIA
     Dosage: DATES OF USE GIVEN?01-JUN-2016-15-APR-2016
     Route: 048
  5. BUDESONIDE/FORMOTEROL [Concomitant]
     Active Substance: BUDESONIDE\FORMOTEROL
  6. CALCIUM + VITAMIN D [Concomitant]
     Active Substance: CALCIUM\VITAMIN D
  7. ASPIRIN. [Concomitant]
     Active Substance: ASPIRIN

REACTIONS (6)
  - Lactic acidosis [None]
  - Acute kidney injury [None]
  - Pancreatitis [None]
  - Acute hepatic failure [None]
  - Hypoperfusion [None]
  - Haemodialysis [None]

NARRATIVE: CASE EVENT DATE: 20160415
